FAERS Safety Report 7107339-X (Version None)
Quarter: 2010Q4

REPORT INFORMATION
  Report Type: 
  Country: None (occurrence: None)
  Receive Date: 20101112
  Receipt Date: 20101112
  Transmission Date: 20110411
  Serious: Yes (Other)
  Sender: FDA-Public Use
  Company Number: None

PATIENT
  Age: 27 Year
  Sex: Female
  Weight: 72.5755 kg

DRUGS (1)
  1. CALADRYL [Suspect]

REACTIONS (3)
  - HYPERSENSITIVITY [None]
  - PRODUCT LABEL ISSUE [None]
  - URTICARIA [None]
